FAERS Safety Report 5309146-7 (Version None)
Quarter: 2007Q2

REPORT INFORMATION
  Report Type: 
  Country: None (occurrence: None)
  Receive Date: 20070423
  Receipt Date: 20070412
  Transmission Date: 20071010
  Serious: Yes (Hospitalization)
  Sender: FDA-Public Use
  Company Number: 232932K07USA

PATIENT
  Age: 52 Year
  Sex: Male

DRUGS (3)
  1. REBIF [Suspect]
     Indication: MULTIPLE SCLEROSIS
     Dosage: 44 MCG; 3 IN 1 WEEKS, SUBCUTANEOUS
     Route: 058
     Dates: start: 20040618
  2. INSULIN (INSULIN/00030501) [Concomitant]
  3. GLUCOPHAGE  (METFORMIN/00082701) [Concomitant]

REACTIONS (4)
  - CONDITION AGGRAVATED [None]
  - OSTEOARTHRITIS [None]
  - SPEECH DISORDER [None]
  - VISUAL DISTURBANCE [None]
